FAERS Safety Report 10876745 (Version 1)
Quarter: 2015Q1

REPORT INFORMATION
  Report Type: Spontaneous
  Country: GB (occurrence: GB)
  Receive Date: 20150302
  Receipt Date: 20150302
  Transmission Date: 20150721
  Serious: Yes (Other)
  Sender: FDA-Public Use
  Company Number: GB-BAUSCH-BL-2015-003539

PATIENT
  Sex: Female

DRUGS (1)
  1. ZYCLARA [Suspect]
     Active Substance: IMIQUIMOD
     Indication: PHOTODERMATOSIS
     Route: 061
     Dates: start: 20141217, end: 20141226

REACTIONS (4)
  - Off label use [Unknown]
  - Application site pain [Unknown]
  - Purulence [Unknown]
  - Application site scar [Unknown]

NARRATIVE: CASE EVENT DATE: 20141227
